FAERS Safety Report 7463596-1 (Version None)
Quarter: 2011Q2

REPORT INFORMATION
  Report Type: 
  Country: None (occurrence: None)
  Receive Date: 20110506
  Receipt Date: 20110425
  Transmission Date: 20111010
  Serious: Yes (Other)
  Sender: FDA-Public Use
  Company Number: BR-SANOFI-AVENTIS-2011SA025897

PATIENT
  Age: 78 Year
  Sex: Female
  Weight: 160 kg

DRUGS (2)
  1. LANTUS [Suspect]
     Route: 058
  2. ASPIRIN [Concomitant]
     Route: 048

REACTIONS (3)
  - ENDOMETRIOSIS [None]
  - UTERINE POLYP [None]
  - HYPERGLYCAEMIA [None]
